FAERS Safety Report 24375916 (Version 1)
Quarter: 2024Q3

REPORT INFORMATION
  Report Type: Report from Study
  Country: FR (occurrence: FR)
  Receive Date: 20240928
  Receipt Date: 20240928
  Transmission Date: 20241017
  Serious: Yes (Death)
  Sender: TAKEDA
  Company Number: FR-TAKEDA-2024TUS095235

PATIENT

DRUGS (1)
  1. MARIBAVIR [Suspect]
     Active Substance: MARIBAVIR
     Indication: Cytomegalovirus infection
     Dosage: 200 MILLIGRAM
     Route: 065

REACTIONS (1)
  - Disease progression [Fatal]
